FAERS Safety Report 4926577-5 (Version None)
Quarter: 2006Q1

REPORT INFORMATION
  Report Type: 
  Country: None (occurrence: None)
  Receive Date: 20060228
  Receipt Date: 20050505
  Transmission Date: 20060701
  Serious: No
  Sender: FDA-Public Use
  Company Number: US-GLAXOSMITHKLINE-A0557402A

PATIENT
  Age: 76 Year
  Sex: Female

DRUGS (5)
  1. LAMICTAL [Suspect]
     Dosage: 25MG ALTERNATE DAYS
     Route: 048
  2. LIPITOR [Concomitant]
  3. HYZAAR [Concomitant]
     Route: 065
  4. SYNTHROID [Concomitant]
  5. EVISTA [Concomitant]

REACTIONS (1)
  - RASH [None]
